FAERS Safety Report 10094897 (Version 2)
Quarter: 2014Q2

REPORT INFORMATION
  Report Type: Spontaneous
  Country: US (occurrence: US)
  Receive Date: 20140422
  Receipt Date: 20140422
  Transmission Date: 20141212
  Serious: No
  Sender: FDA-Public Use
  Company Number: US-BAUSCH-BL-2014-001394

PATIENT
  Age: 71 Year
  Sex: Female

DRUGS (4)
  1. PROLENSA (BROMFENAC OPHTHALMIC SOLUTION) 0.07% [Suspect]
     Indication: PREOPERATIVE CARE
     Route: 047
     Dates: start: 20140303, end: 20140304
  2. TYLENOL [Concomitant]
     Indication: PRODUCT USED FOR UNKNOWN INDICATION
     Dates: start: 201308
  3. ZANTAC [Concomitant]
     Indication: DYSPEPSIA
     Dates: start: 201308, end: 20140302
  4. ZANTAC [Concomitant]
     Indication: ABDOMINAL DISTENSION

REACTIONS (3)
  - Off label use [Recovering/Resolving]
  - Dyspepsia [Recovering/Resolving]
  - Acute sinusitis [Unknown]
